FAERS Safety Report 26130229 (Version 1)
Quarter: 2025Q4

REPORT INFORMATION
  Report Type: Spontaneous
  Country: US (occurrence: US)
  Receive Date: 20251208
  Receipt Date: 20251208
  Transmission Date: 20260117
  Serious: Yes (Hospitalization, Other)
  Sender: SANOFI AVENTIS
  Company Number: US-SA-2025SA361096

PATIENT
  Age: 48 Year
  Sex: Male

DRUGS (2)
  1. DUPIXENT [Suspect]
     Active Substance: DUPILUMAB
     Indication: Asthma
     Dosage: 600 MG, 1X
     Route: 058
     Dates: start: 202508, end: 202508
  2. DUPIXENT [Suspect]
     Active Substance: DUPILUMAB
     Dosage: 300 MG, QOW
     Route: 058
     Dates: start: 2025

REACTIONS (32)
  - Colitis [Unknown]
  - Haematochezia [Unknown]
  - Pyrexia [Unknown]
  - Diarrhoea [Unknown]
  - Abdominal pain [Unknown]
  - Cluster headache [Unknown]
  - Spinal cord injury [Unknown]
  - Condition aggravated [Unknown]
  - Gastric ulcer [Unknown]
  - Acne [Not Recovered/Not Resolved]
  - Thyroid pain [Unknown]
  - Pain [Recovered/Resolved]
  - Gastrooesophageal reflux disease [Unknown]
  - Condition aggravated [Unknown]
  - Respiratory tract congestion [Unknown]
  - Cough [Not Recovered/Not Resolved]
  - Dysphonia [Unknown]
  - Nerve injury [Unknown]
  - Neck pain [Unknown]
  - Asthenia [Unknown]
  - Sleep disorder due to a general medical condition [Unknown]
  - Mobility decreased [Unknown]
  - Tremor [Unknown]
  - Arthritis [Unknown]
  - Pain in extremity [Unknown]
  - Myalgia [Unknown]
  - Headache [Unknown]
  - Injection site bruising [Not Recovered/Not Resolved]
  - Injection site pain [Not Recovered/Not Resolved]
  - Asthma [Unknown]
  - Drug ineffective [Unknown]
  - Product dose omission issue [Unknown]

NARRATIVE: CASE EVENT DATE: 20250101
